FAERS Safety Report 9714140 (Version 2)
Quarter: 2015Q3

REPORT INFORMATION
  Report Type: Spontaneous
  Country: US (occurrence: US)
  Receive Date: 20131126
  Receipt Date: 20150803
  Transmission Date: 20151125
  Serious: No
  Sender: FDA-Public Use
  Company Number: US-GILEAD-2008-0019093

PATIENT
  Age: 69 Year
  Sex: Male
  Weight: 81.65 kg

DRUGS (8)
  1. COLCHICINE. [Concomitant]
     Active Substance: COLCHICINE
  2. DIOVAN [Concomitant]
     Active Substance: VALSARTAN
  3. K-DUR [Concomitant]
     Active Substance: POTASSIUM CHLORIDE
  4. FLOMAX [Concomitant]
     Active Substance: TAMSULOSIN HYDROCHLORIDE
  5. LETAIRIS [Suspect]
     Active Substance: AMBRISENTAN
     Indication: PULMONARY ARTERIAL HYPERTENSION
     Route: 048
     Dates: start: 20080404
  6. CRESTOR [Concomitant]
     Active Substance: ROSUVASTATIN CALCIUM
  7. COUMADIN [Concomitant]
     Active Substance: WARFARIN SODIUM
  8. LASIX [Concomitant]
     Active Substance: FUROSEMIDE

REACTIONS (2)
  - Red blood cell count decreased [Not Recovered/Not Resolved]
  - International normalised ratio fluctuation [Not Recovered/Not Resolved]

NARRATIVE: CASE EVENT DATE: 20080602
